FAERS Safety Report 10307386 (Version 2)
Quarter: 2014Q3

REPORT INFORMATION
  Report Type: Report from Study
  Country: ES (occurrence: ES)
  Receive Date: 20140716
  Receipt Date: 20140815
  Transmission Date: 20150326
  Serious: Yes (Other)
  Sender: FDA-Public Use
  Company Number: ES-009507513-1407ESP005425

PATIENT
  Age: 39 Year
  Sex: Female
  Weight: 59 kg

DRUGS (1)
  1. TIMOTHY, STANDARDIZED [Suspect]
     Active Substance: PHLEUM PRATENSE POLLEN
     Indication: HYPERSENSITIVITY
     Dosage: 75000 SQ-T, DAILY, ORAL LYOPHILISARE
     Route: 060
     Dates: start: 20090921, end: 20120614

REACTIONS (1)
  - Abortion spontaneous [Recovered/Resolved]

NARRATIVE: CASE EVENT DATE: 201404
